FAERS Safety Report 8088883-8 (Version None)
Quarter: 2012Q1

REPORT INFORMATION
  Report Type: 
  Country: None (occurrence: None)
  Receive Date: 20120128
  Receipt Date: 20110413
  Transmission Date: 20120608
  Serious: No
  Sender: FDA-Public Use
  Company Number: US-ABBOTT-11P-163-0718752-00

PATIENT
  Age: 48 Year
  Sex: Female

DRUGS (8)
  1. HUMIRA [Suspect]
     Indication: RHEUMATOID ARTHRITIS
     Dates: end: 20101201
  2. HYDROCODONE BITARTRATE [Concomitant]
     Indication: PAIN
  3. XANAX [Concomitant]
     Indication: ANXIETY
     Dosage: 0.5MG DAILY
  4. NYSTATIN [Concomitant]
     Indication: STOMATITIS
     Dosage: MOUTH RINSE AS NEEDED
  5. PREDNISONE TAB [Concomitant]
     Indication: PRODUCT USED FOR UNKNOWN INDICATION
     Dosage: 7.5MG DAILY
  6. VITAMIN D [Concomitant]
     Indication: PRODUCT USED FOR UNKNOWN INDICATION
  7. ALBUTEROL INHALER [Concomitant]
     Indication: BRONCHITIS
  8. HUMIRA [Suspect]
     Dates: start: 20110328

REACTIONS (8)
  - NAUSEA [None]
  - EYE PAIN [None]
  - VOMITING [None]
  - PULMONARY CONGESTION [None]
  - HEADACHE [None]
  - BRONCHITIS [None]
  - RETCHING [None]
  - ANXIETY [None]
